FAERS Safety Report 11423282 (Version 1)
Quarter: 2015Q3

REPORT INFORMATION
  Report Type: Spontaneous
  Country: US (occurrence: None)
  Receive Date: 20150826
  Receipt Date: 20150826
  Transmission Date: 20151125
  Serious: Yes (Disabling)
  Sender: FDA-Public Use
  Company Number: None

PATIENT
  Age: 43 Year
  Sex: Female
  Weight: 87.54 kg

DRUGS (5)
  1. CYMBALTA [Suspect]
     Active Substance: DULOXETINE HYDROCHLORIDE
     Indication: PAIN MANAGEMENT
     Dosage: 60 MG 1 PILL 2 TIMES DAILY ORALLY
     Route: 048
     Dates: start: 20100913, end: 201412
  2. TRAMADOL. [Concomitant]
     Active Substance: TRAMADOL
  3. XANEX [Concomitant]
  4. ANTIVERT [Concomitant]
     Active Substance: MECLIZINE HYDROCHLORIDE
  5. CYMBALTA [Suspect]
     Active Substance: DULOXETINE HYDROCHLORIDE
     Indication: ANXIETY
     Dosage: 60 MG 1 PILL 2 TIMES DAILY ORALLY
     Route: 048
     Dates: start: 20100913, end: 201412

REACTIONS (4)
  - Tooth discolouration [None]
  - Tooth fracture [None]
  - Tooth loss [None]
  - Pain in jaw [None]
